FAERS Safety Report 7177701-8 (Version None)
Quarter: 2010Q4

REPORT INFORMATION
  Report Type: 
  Country: None (occurrence: None)
  Receive Date: 20101123
  Receipt Date: 20100727
  Transmission Date: 20110411
  Serious: No
  Sender: FDA-Public Use
  Company Number: 016548

PATIENT
  Sex: Female
  Weight: 45.4 kg

DRUGS (5)
  1. CIMZIA [Suspect]
     Indication: CROHN'S DISEASE
     Dosage: (2 SHOTS OF INITIAL DOSE SUBCUTANEOUS)
     Route: 058
     Dates: start: 20100716
  2. OMEPRAZOLE [Concomitant]
  3. PREDNISONE [Concomitant]
  4. MESALAMINE [Concomitant]
  5. FOLIC ACID [Concomitant]

REACTIONS (1)
  - INJECTION SITE DISCOLOURATION [None]
